FAERS Safety Report 8943951 (Version 2)
Quarter: 2014Q2

REPORT INFORMATION
  Report Type: Spontaneous
  Country: US (occurrence: US)
  Receive Date: 20121204
  Receipt Date: 20140530
  Transmission Date: 20141212
  Serious: No
  Sender: FDA-Public Use
  Company Number: US-ASTRAZENECA-1998AU04151

PATIENT
  Age: 53 Year
  Sex: Female
  Weight: 84.4 kg

DRUGS (28)
  1. SYMBICORT PMDI [Suspect]
     Dosage: 160/4.5, 320 MCG,  2 PUFFS BID
     Route: 055
  2. PULMICORT [Suspect]
     Indication: ASTHMA
     Route: 055
     Dates: start: 19980512
  3. PULMICORT [Suspect]
     Indication: ASTHMA
     Dosage: 90MCG, 2 PUFFS BID PRN.
     Route: 055
  4. LISINOPRIL [Suspect]
     Route: 048
  5. RHINOCORT AQUA [Suspect]
     Route: 045
  6. ACCOLATE [Concomitant]
     Indication: ASTHMA
     Dosage: DOSE: 20 MG TOTAL DAILY DOSE: 40 MG
     Route: 048
  7. AZMACORT [Concomitant]
     Indication: ASTHMA
     Dosage: DOSE: 2  TOTAL DAILY DOSE: 8
     Route: 055
  8. LASIX [Concomitant]
     Indication: SWELLING
     Route: 048
  9. MEDROL [Concomitant]
     Indication: ASTHMA
     Dosage: DOSE: 12 MG TOTAL DAILY DOSE: 12 MG
     Route: 048
     Dates: end: 19980427
  10. MEDROL [Concomitant]
     Indication: MULTIPLE ALLERGIES
     Dosage: DOSE: 12 MG TOTAL DAILY DOSE: 12 MG
     Route: 048
     Dates: end: 19980427
  11. MEDROL [Concomitant]
     Indication: ASTHMA
     Dosage: DOSE: 40 MG TOTAL DAILY DOSE: 40 MG
     Route: 048
     Dates: start: 19980428
  12. MEDROL [Concomitant]
     Indication: MULTIPLE ALLERGIES
     Dosage: DOSE: 40 MG TOTAL DAILY DOSE: 40 MG
     Route: 048
     Dates: start: 19980428
  13. MEDROL [Concomitant]
     Indication: ASTHMA
     Dosage: DOSE: 16 MG TOTAL DAILY DOSE: 16 MG
     Route: 048
     Dates: start: 19980518
  14. MEDROL [Concomitant]
     Indication: MULTIPLE ALLERGIES
     Dosage: DOSE: 16 MG TOTAL DAILY DOSE: 16 MG
     Route: 048
     Dates: start: 19980518
  15. MEDROL [Concomitant]
     Indication: ASTHMA
     Dosage: DOSE: 20 MG TOTAL DAILY DOSE: 20 MG
     Route: 048
     Dates: start: 19980513, end: 19980517
  16. MEDROL [Concomitant]
     Indication: MULTIPLE ALLERGIES
     Dosage: DOSE: 20 MG TOTAL DAILY DOSE: 20 MG
     Route: 048
     Dates: start: 19980513, end: 19980517
  17. PROVENTIL [Concomitant]
     Indication: ASTHMA
     Dosage: AS REQUIRED
     Route: 065
  18. SEREVENT [Concomitant]
     Indication: ASTHMA
     Dosage: DOSE: 2  TOTAL DAILY DOSE: 4
     Route: 055
  19. TILADE [Concomitant]
     Indication: ASTHMA
     Dosage: TWO PUFFS FOUR TIMES A DAY
     Route: 055
  20. METHYLDOPA [Concomitant]
     Route: 065
  21. POTASSIUM [Concomitant]
     Route: 065
  22. PEPCID [Concomitant]
     Route: 065
  23. XYZAL [Concomitant]
     Route: 065
  24. SINGULAIR [Concomitant]
     Route: 065
  25. BONIVA [Concomitant]
     Route: 065
  26. EPIPEN [Concomitant]
     Route: 065
  27. PROAIR [Concomitant]
     Route: 065
  28. ALBUTEROL [Concomitant]
     Route: 065

REACTIONS (4)
  - Asthma [Unknown]
  - Generalised oedema [Not Recovered/Not Resolved]
  - Off label use [Unknown]
  - Drug hypersensitivity [Unknown]
